FAERS Safety Report 7646322-2 (Version None)
Quarter: 2011Q3

REPORT INFORMATION
  Report Type: 
  Country: None (occurrence: None)
  Receive Date: 20110725
  Receipt Date: 20110615
  Transmission Date: 20111222
  Serious: Yes (Other)
  Sender: FDA-Public Use
  Company Number: USA/USA/11/0019039

PATIENT
  Age: 52 Year
  Sex: Female

DRUGS (3)
  1. OMEPRAZOLE [Concomitant]
  2. LISINOPRIL [Concomitant]
  3. MELOXICAM [Suspect]
     Indication: OSTEOARTHRITIS
     Dosage: 15 MG, 1 D

REACTIONS (11)
  - HAEMOGLOBIN DECREASED [None]
  - SMALL INTESTINAL HAEMORRHAGE [None]
  - SERUM FERRITIN DECREASED [None]
  - SMALL INTESTINAL STENOSIS [None]
  - IRON DEFICIENCY [None]
  - ABDOMINAL PAIN [None]
  - IRON BINDING CAPACITY TOTAL INCREASED [None]
  - BLOOD ALBUMIN DECREASED [None]
  - INTESTINAL ULCER [None]
  - CHANGE OF BOWEL HABIT [None]
  - VOMITING [None]
